FAERS Safety Report 4734553-0 (Version None)
Quarter: 2005Q3

REPORT INFORMATION
  Report Type: 
  Country: None (occurrence: None)
  Receive Date: 20050729
  Receipt Date: 20050720
  Transmission Date: 20060218
  Serious: Yes (Hospitalization)
  Sender: FDA-Public Use
  Company Number: HQWYE409622JUL05

PATIENT
  Age: 49 Year
  Sex: Female
  Weight: 62 kg

DRUGS (11)
  1. RAPAMUNE [Suspect]
     Indication: PROPHYLAXIS AGAINST TRANSPLANT REJECTION
     Dosage: 12 MG 1X PER 1 DAY, ORAL
     Route: 048
     Dates: start: 20050114
  2. RAPAMUNE [Suspect]
  3. LIPITOR [Concomitant]
  4. LASIX [Concomitant]
  5. MULTIVITAMINS (ASCORBIC ACID/ERGOCALCIFEROL/FOLIC ACID/NICOTINAMIDE/PA [Concomitant]
  6. PROGRAF [Concomitant]
  7. LOPRESSOR [Concomitant]
  8. LANTUS [Concomitant]
  9. PREDNISONE [Concomitant]
  10. INSULIN [Concomitant]
  11. ZENAPAX [Concomitant]

REACTIONS (3)
  - ANKLE FRACTURE [None]
  - FALL [None]
  - OEDEMA PERIPHERAL [None]
